FAERS Safety Report 15824037 (Version 2)
Quarter: 2019Q1

REPORT INFORMATION
  Report Type: Spontaneous
  Country: US (occurrence: US)
  Receive Date: 20190114
  Receipt Date: 20190221
  Transmission Date: 20190417
  Serious: No
  Sender: FDA-Public Use
  Company Number: US-ASTRAZENECA-2018SF70717

PATIENT
  Age: 31848 Day
  Sex: Male
  Weight: 90.7 kg

DRUGS (1)
  1. SYMBICORT [Suspect]
     Active Substance: BUDESONIDE\FORMOTEROL FUMARATE DIHYDRATE
     Indication: CHRONIC OBSTRUCTIVE PULMONARY DISEASE
     Dosage: 160/4.5 MCG, TWO PUFFS TWO TIMES A DAY
     Route: 055
     Dates: start: 20180919, end: 20181212

REACTIONS (8)
  - Anxiety [Unknown]
  - Product dose omission [Unknown]
  - Speech disorder [Unknown]
  - Dyspnoea [Unknown]
  - Pharyngitis streptococcal [Unknown]
  - Dysphonia [Unknown]
  - Oropharyngeal pain [Unknown]
  - Intentional product misuse [Unknown]

NARRATIVE: CASE EVENT DATE: 20181212
